FAERS Safety Report 20168274 (Version 8)
Quarter: 2022Q1

REPORT INFORMATION
  Report Type: Spontaneous
  Country: DE (occurrence: DE)
  Receive Date: 20211210
  Receipt Date: 20220315
  Transmission Date: 20220423
  Serious: Yes (Hospitalization, Other)
  Sender: FDA-Public Use
  Company Number: DE-LESVI-2021000602

PATIENT
  Age: 82 Year
  Sex: Female

DRUGS (20)
  1. ALENDRONIC ACID [Suspect]
     Active Substance: ALENDRONIC ACID
     Indication: Parkinson^s disease
     Dosage: 70 MILLIGRAM, EVERY WEEK
     Route: 065
  2. CANDESARTAN [Suspect]
     Active Substance: CANDESARTAN
     Indication: Parkinson^s disease
     Dosage: 16 MILLIGRAM, ONCE A DAY(16 MG, 1X/DAY )
     Route: 065
  3. IBUPROFEN [Suspect]
     Active Substance: IBUPROFEN
     Indication: Parkinson^s disease
     Dosage: 200 MILLIGRAM, 3 TIMES A DAY
     Route: 065
  4. IBUPROFEN [Suspect]
     Active Substance: IBUPROFEN
     Dosage: 600 MILLIGRAM, ONCE A DAY
     Route: 065
  5. MIRTAZAPINE [Suspect]
     Active Substance: MIRTAZAPINE
     Indication: Depressive symptom
     Dosage: 30 MILLIGRAM, ONCE A DAY(30 MG, 1X/DAY)
     Route: 065
  6. MIRTAZAPINE [Suspect]
     Active Substance: MIRTAZAPINE
     Indication: Parkinson^s disease
  7. OLANZAPINE [Suspect]
     Active Substance: OLANZAPINE
     Indication: Psychotic symptom
     Dosage: 15 MILLIGRAM, ONCE A DAY
     Route: 065
  8. OLANZAPINE [Suspect]
     Active Substance: OLANZAPINE
     Indication: Depressive symptom
     Dosage: 10 MILLIGRAM, ONCE A DAY
     Route: 065
  9. OLANZAPINE [Suspect]
     Active Substance: OLANZAPINE
     Indication: Parkinson^s disease
  10. PANTOPRAZOLE [Suspect]
     Active Substance: PANTOPRAZOLE
     Indication: Parkinson^s disease
     Dosage: 20 MILLIGRAM, ONCE A DAY(20 MG, 1X/DAY)
     Route: 065
  11. CHOLECALCIFEROL [Suspect]
     Active Substance: CHOLECALCIFEROL
     Indication: Parkinson^s disease
     Dosage: 1000 INTERNATIONAL UNIT, ONCE A DAY (1IU DAILY)
     Route: 065
  12. CHOLECALCIFEROL [Suspect]
     Active Substance: CHOLECALCIFEROL
     Dosage: 1 INTERNATIONAL UNIT, ONCE A DAY
     Route: 065
  13. DOXEPIN [Suspect]
     Active Substance: DOXEPIN
     Indication: Sleep disorder
     Dosage: 12.5 MILLIGRAM, ONCE A DAY(12.5 MG, DAILY)
     Route: 065
  14. DOXEPIN [Suspect]
     Active Substance: DOXEPIN
     Indication: Insomnia
  15. LEVOTHYROXINE [Suspect]
     Active Substance: LEVOTHYROXINE
     Indication: Parkinson^s disease
     Dosage: 62.5 MICROGRAM, ONCE A DAY(62.5 UG, 1X/DAY )
     Route: 016
  16. METAMIZOLE [Suspect]
     Active Substance: METAMIZOLE
     Indication: Parkinson^s disease
     Dosage: 500 MILLIGRAM, TWO TIMES A DAY
     Route: 065
  17. METAMIZOLE [Suspect]
     Active Substance: METAMIZOLE
     Dosage: 1000 MILLIGRAM, ONCE A DAY
     Route: 065
  18. URSODIOL [Suspect]
     Active Substance: URSODIOL
     Indication: Parkinson^s disease
     Dosage: 500 MILLIGRAM, ONCE A DAY(500 MG, 1X/DAY)
     Route: 065
  19. CANDESARTAN [Concomitant]
     Active Substance: CANDESARTAN
     Indication: Product used for unknown indication
     Dosage: 16 MILLIGRAM, ONCE A DAY
     Route: 065
  20. CHOLECALCIFEROL [Concomitant]
     Active Substance: CHOLECALCIFEROL
     Indication: Product used for unknown indication
     Dosage: 1 INTERNATIONAL UNIT, ONCE A DAY
     Route: 065

REACTIONS (5)
  - Major depression [Unknown]
  - Psychotic symptom [Unknown]
  - Insomnia [Unknown]
  - Therapeutic product effect decreased [Unknown]
  - Drug ineffective [Recovered/Resolved]
